FAERS Safety Report 23442964 (Version 1)
Quarter: 2024Q1

REPORT INFORMATION
  Report Type: Spontaneous
  Country: US (occurrence: None)
  Receive Date: 20240125
  Receipt Date: 20240125
  Transmission Date: 20240409
  Serious: Yes (Hospitalization)
  Sender: FDA-Public Use
  Company Number: None

PATIENT
  Age: 54 Year
  Sex: Female
  Weight: 81.6 kg

DRUGS (2)
  1. XELODA [Suspect]
     Active Substance: CAPECITABINE
     Dates: end: 20231226
  2. ELOXATIN [Suspect]
     Active Substance: OXALIPLATIN
     Dates: end: 20231219

REACTIONS (15)
  - Cholelithiasis [None]
  - Peritonitis [None]
  - Pneumatosis [None]
  - Internal hernia [None]
  - Enteritis [None]
  - Small intestinal haemorrhage [None]
  - Clostridium difficile infection [None]
  - Sapovirus infection [None]
  - Mesenteric artery embolisation [None]
  - Lactic acidosis [None]
  - Procalcitonin increased [None]
  - Lipase increased [None]
  - Enterocolitis [None]
  - Appendicectomy [None]
  - Abdominal wall operation [None]

NARRATIVE: CASE EVENT DATE: 20231228
